FAERS Safety Report 21570472 (Version 1)
Quarter: 2022Q4

REPORT INFORMATION
  Report Type: Spontaneous
  Country: JP (occurrence: JP)
  Receive Date: 20221109
  Receipt Date: 20221109
  Transmission Date: 20230113
  Serious: Yes (Hospitalization, Other)
  Sender: FDA-Public Use
  Company Number: JP-002147023-NVSC2022JP242743

PATIENT
  Age: 48 Year
  Sex: Male

DRUGS (1)
  1. FINGOLIMOD HYDROCHLORIDE [Suspect]
     Active Substance: FINGOLIMOD HYDROCHLORIDE
     Indication: Relapsing multiple sclerosis
     Dosage: UNK
     Route: 065

REACTIONS (3)
  - Bacteraemia [Recovered/Resolved]
  - Medical device site joint infection [Recovered/Resolved]
  - Pyrexia [Recovered/Resolved]
